FAERS Safety Report 8008034-5 (Version None)
Quarter: 2011Q4

REPORT INFORMATION
  Report Type: 
  Country: None (occurrence: None)
  Receive Date: 20111227
  Receipt Date: 20111219
  Transmission Date: 20120403
  Serious: Yes (Death, Other)
  Sender: FDA-Public Use
  Company Number: PHHY2011NL110309

PATIENT
  Sex: Male

DRUGS (1)
  1. OCTREOTIDE ACETATE [Suspect]
     Indication: CHYLOTHORAX
     Dosage: 6 UG/KG/H FOR 23 DAYS

REACTIONS (3)
  - RESPIRATORY DISORDER [None]
  - PULMONARY HYPERTENSION [None]
  - CARDIO-RESPIRATORY DISTRESS [None]
